FAERS Safety Report 5722326-1 (Version None)
Quarter: 2008Q2

REPORT INFORMATION
  Report Type: 
  Country: None (occurrence: None)
  Receive Date: 20080429
  Receipt Date: 20070723
  Transmission Date: 20081010
  Serious: No
  Sender: FDA-Public Use
  Company Number: US-ASTRAZENECA-2007UW17845

PATIENT
  Sex: Female
  Weight: 61.2 kg

DRUGS (7)
  1. NEXIUM [Suspect]
     Indication: VOMITING
     Route: 048
     Dates: start: 20070701
  2. NEXIUM [Suspect]
     Indication: GASTROOESOPHAGEAL REFLUX DISEASE
     Route: 048
     Dates: start: 20070701
  3. TYLENOL [Concomitant]
  4. NORVASC [Concomitant]
  5. TEMAZEPAM [Concomitant]
  6. ZOLOFT [Concomitant]
  7. ATENOLOL [Concomitant]
     Route: 048

REACTIONS (1)
  - FAECES PALE [None]
